FAERS Safety Report 8019959-9 (Version None)
Quarter: 2012Q1

REPORT INFORMATION
  Report Type: 
  Country: None (occurrence: None)
  Receive Date: 20120103
  Receipt Date: 20111228
  Transmission Date: 20120608
  Serious: Yes (Death, Other)
  Sender: FDA-Public Use
  Company Number: US-CELGENEUS-163-21880-11120186

PATIENT
  Sex: Male
  Weight: 73.5 kg

DRUGS (9)
  1. REVLIMID [Suspect]
     Indication: MULTIPLE MYELOMA
     Dosage: 25 MILLIGRAM
     Route: 048
     Dates: start: 20110811, end: 20111101
  2. FLEXERIL [Concomitant]
     Route: 065
  3. MS CONTIN [Concomitant]
     Route: 065
  4. ZOCOR [Concomitant]
     Route: 065
  5. VITAMIN D [Concomitant]
     Route: 065
  6. CALCIUM CARBONATE [Concomitant]
     Route: 065
  7. HYDROCODONE [Concomitant]
     Route: 065
  8. LISINOPRIL [Concomitant]
     Route: 065
  9. DECADRON [Concomitant]
     Route: 065

REACTIONS (3)
  - HYPERCALCAEMIA [None]
  - ANAEMIA [None]
  - CARDIAC ARREST [None]
